FAERS Safety Report 7073734-0 (Version None)
Quarter: 2010Q4

REPORT INFORMATION
  Report Type: 
  Country: None (occurrence: None)
  Receive Date: 20101029
  Receipt Date: 20100806
  Transmission Date: 20110411
  Serious: No
  Sender: FDA-Public Use
  Company Number: A0874420A

PATIENT
  Sex: Female

DRUGS (2)
  1. ADVAIR DISKUS 100/50 [Suspect]
     Indication: CHRONIC OBSTRUCTIVE PULMONARY DISEASE
  2. NO CONCURRENT MEDICATION [Concomitant]

REACTIONS (5)
  - DRY EYE [None]
  - EYE DISCHARGE [None]
  - EYE INFECTION [None]
  - EYELID DISORDER [None]
  - LACRIMATION INCREASED [None]
